FAERS Safety Report 11358784 (Version 1)
Quarter: 2015Q3

REPORT INFORMATION
  Report Type: Report from Study
  Country: US (occurrence: None)
  Receive Date: 20150716
  Receipt Date: 20150716
  Transmission Date: 20151125
  Serious: Yes (Hospitalization)
  Sender: FDA-Public Use
  Company Number: 2013PROUSA03127

PATIENT
  Age: 58 Year
  Sex: Male
  Weight: 128 kg

DRUGS (20)
  1. PROVENGE [Suspect]
     Active Substance: SIPULEUCEL-T
     Indication: PROSTATE CANCER METASTATIC
     Dosage: 250 ML, SINGLE INTRAVENOUS
     Route: 042
     Dates: start: 20130614, end: 20130614
  2. MYRBETRIQ [Concomitant]
     Active Substance: MIRABEGRON
  3. MOTRIN [Concomitant]
     Active Substance: IBUPROFEN
  4. FLOMAX [Concomitant]
     Active Substance: TAMSULOSIN HYDROCHLORIDE
  5. FORTAMET (METFORMIN HYDROCHLORIDE) [Concomitant]
  6. GLIPIZIDE. [Concomitant]
     Active Substance: GLIPIZIDE
  7. TORADOL [Concomitant]
     Active Substance: KETOROLAC TROMETHAMINE
  8. LUPRON (LEUPRORELIN ACETATE) [Concomitant]
  9. ALDACTONE [Concomitant]
     Active Substance: SPIRONOLACTONE
  10. TOPROL XL [Concomitant]
     Active Substance: METOPROLOL SUCCINATE
  11. PERCOCET (OXYCODONE HYDROCHLORIDE, PARACETAMOL) [Concomitant]
  12. ASPIRIN (ACETYLSALICYLIC ACID) [Concomitant]
     Active Substance: ASPIRIN
  13. JANUVIA [Concomitant]
     Active Substance: SITAGLIPTIN PHOSPHATE
  14. ABILIFY [Concomitant]
     Active Substance: ARIPIPRAZOLE
  15. FINASTERIDE. [Concomitant]
     Active Substance: FINASTERIDE
  16. NORVASC [Concomitant]
     Active Substance: AMLODIPINE BESYLATE
  17. ELAVIL [Concomitant]
     Active Substance: AMITRIPTYLINE HYDROCHLORIDE
  18. AMBIEN [Concomitant]
     Active Substance: ZOLPIDEM TARTRATE
  19. CITRACAL + D (CALCIUM CITRATE, ERGOCALCIFEROL) [Concomitant]
  20. XGEVA [Concomitant]
     Active Substance: DENOSUMAB

REACTIONS (2)
  - Dyspnoea [None]
  - Urinary tract infection [None]

NARRATIVE: CASE EVENT DATE: 20130814
